FAERS Safety Report 9636231 (Version 4)
Quarter: 2014Q2

REPORT INFORMATION
  Report Type: Spontaneous
  Country: JP (occurrence: JP)
  Receive Date: 20131021
  Receipt Date: 20140610
  Transmission Date: 20141212
  Serious: Yes (Hospitalization)
  Sender: FDA-Public Use
  Company Number: JP-B.I. PHARMACEUTICALS,INC./RIDGEFIELD-2013-BI-33129NB

PATIENT
  Age: 48 Year
  Sex: Female
  Weight: 65 kg

DRUGS (6)
  1. MICARDIS [Suspect]
     Indication: HYPERTENSION
     Dosage: 40 MG
     Route: 048
     Dates: start: 20130912, end: 20131009
  2. LITIOMAL [Suspect]
     Indication: SCHIZOAFFECTIVE DISORDER
     Dosage: 1200 MG
     Route: 048
     Dates: start: 20130713, end: 20131009
  3. ZYPREXA / OLANZAPINE [Concomitant]
     Indication: SCHIZOAFFECTIVE DISORDER
     Dosage: 20 MG
     Route: 048
     Dates: start: 20130713, end: 20131009
  4. LEVOTOMIN / LEVOMEPROMAZINE MALEATE [Concomitant]
     Indication: SCHIZOAFFECTIVE DISORDER
     Dosage: 5 MG
     Route: 048
     Dates: start: 20130713, end: 20131009
  5. RIVOTRIL / CLONAZEPAM [Concomitant]
     Indication: SCHIZOAFFECTIVE DISORDER
     Dosage: 2 MG
     Route: 048
     Dates: start: 20130713, end: 20131009
  6. VALERIN / SODIUM VALPROATE [Concomitant]
     Indication: SCHIZOAFFECTIVE DISORDER
     Dosage: 400 MG
     Route: 048
     Dates: start: 20130713, end: 20131009

REACTIONS (3)
  - Toxicity to various agents [Recovered/Resolved with Sequelae]
  - Drug interaction [Unknown]
  - Renal failure acute [Unknown]
